FAERS Safety Report 14955660 (Version 1)
Quarter: 2018Q2

REPORT INFORMATION
  Report Type: Spontaneous
  Country: DE (occurrence: DE)
  Receive Date: 20180531
  Receipt Date: 20180531
  Transmission Date: 20180711
  Serious: Yes (Other)
  Sender: FDA-Public Use
  Company Number: DE-AUROBINDO-AUR-APL-2018-004239

PATIENT
  Age: 21 Year
  Sex: Female

DRUGS (8)
  1. LAMOTRIGINE. [Suspect]
     Active Substance: LAMOTRIGINE
     Dosage: BEING CONSTANTLY INCREASED ()
  2. BRIVARACETAM [Suspect]
     Active Substance: BRIVARACETAM
     Dosage: BEING CONSTANTLY INCREASED ()
  3. VIMPAT [Suspect]
     Active Substance: LACOSAMIDE
     Dosage: BEING CONSTANTLY INCREASED ()
  4. LAMOTRIGINE. [Suspect]
     Active Substance: LAMOTRIGINE
     Indication: EPILEPSY
     Dosage: DOSE INCREASE TO 100 MG ()
     Route: 065
  5. BRIVARACETAM [Suspect]
     Active Substance: BRIVARACETAM
     Indication: EPILEPSY
     Dosage: UNK ()
     Route: 065
  6. VIMPAT [Suspect]
     Active Substance: LACOSAMIDE
     Indication: EPILEPSY
     Dosage: 100 MG, ONCE DAILY (QD)
  7. VIMPAT [Suspect]
     Active Substance: LACOSAMIDE
     Dosage: UNK ()
     Route: 065
  8. BRIVARACETAM [Suspect]
     Active Substance: BRIVARACETAM
     Dosage: 10 MG, 2X/DAY (BID)

REACTIONS (7)
  - Listless [Recovering/Resolving]
  - Seizure [Unknown]
  - Unevaluable event [Unknown]
  - Separation anxiety disorder [Unknown]
  - Intentional product misuse [Unknown]
  - Depression [Recovering/Resolving]
  - Fatigue [Recovering/Resolving]
